FAERS Safety Report 18227389 (Version 1)
Quarter: 2020Q3

REPORT INFORMATION
  Report Type: Spontaneous
  Country: CH (occurrence: CH)
  Receive Date: 20200903
  Receipt Date: 20200903
  Transmission Date: 20201103
  Serious: Yes (Other)
  Sender: FDA-Public Use
  Company Number: CH-TEVA-2020-CH-1822679

PATIENT
  Sex: Male

DRUGS (4)
  1. MAGNESIOCARD [Concomitant]
     Active Substance: MAGNESIUM ASPARTATE HYDROCHLORIDE
     Route: 064
  2. BELOC ZOK [Suspect]
     Active Substance: METOPROLOL SUCCINATE
     Indication: VENTRICULAR TACHYARRHYTHMIA
     Dosage: 50 MG 1?0?1/2
     Route: 064
     Dates: start: 20200113
  3. DUOFER [Concomitant]
     Route: 064
  4. SOTALOL. [Suspect]
     Active Substance: SOTALOL
     Indication: VENTRICULAR TACHYARRHYTHMIA
     Route: 064
     Dates: start: 20191127, end: 20200113

REACTIONS (2)
  - Foetal exposure during pregnancy [Unknown]
  - Foetal growth restriction [Recovered/Resolved]

NARRATIVE: CASE EVENT DATE: 201911
